FAERS Safety Report 9900248 (Version 1)
Quarter: 2014Q1

REPORT INFORMATION
  Report Type: Spontaneous
  Country: GB (occurrence: GB)
  Receive Date: 20140215
  Receipt Date: 20140215
  Transmission Date: 20141002
  Serious: Yes (Other)
  Sender: FDA-Public Use
  Company Number: GB-ACCORD-021802

PATIENT
  Age: 51 Year
  Sex: Female
  Weight: 98 kg

DRUGS (3)
  1. AMLODIPINE [Suspect]
     Indication: HYPERTENSION
     Route: 048
     Dates: start: 201311, end: 201312
  2. LANSOPRAZOLE [Interacting]
     Indication: PRODUCT USED FOR UNKNOWN INDICATION
  3. IRON [Concomitant]

REACTIONS (7)
  - Pain [Unknown]
  - Back pain [Unknown]
  - Palpitations [Unknown]
  - Condition aggravated [Unknown]
  - Hiatus hernia [Unknown]
  - Drug ineffective [Unknown]
  - Inhibitory drug interaction [Recovered/Resolved]
